FAERS Safety Report 21623753 (Version 1)
Quarter: 2022Q4

REPORT INFORMATION
  Report Type: Spontaneous
  Country: KR (occurrence: KR)
  Receive Date: 20221121
  Receipt Date: 20221121
  Transmission Date: 20230113
  Serious: No
  Sender: FDA-Public Use
  Company Number: KR-PFIZER INC-202201308913

PATIENT
  Age: 81 Year
  Sex: Male

DRUGS (1)
  1. PAXLOVID [Suspect]
     Active Substance: NIRMATRELVIR\RITONAVIR
     Indication: COVID-19 treatment
     Dosage: ONE WHITE TABLET FOR THE FIRST TIME, THREE PINK TABLETS FOR THE SECOND TIME
     Route: 048

REACTIONS (2)
  - Incorrect dose administered [Unknown]
  - Overdose [Unknown]
